FAERS Safety Report 20491325 (Version 1)
Quarter: 2022Q1

REPORT INFORMATION
  Report Type: Spontaneous
  Country: AR (occurrence: AR)
  Receive Date: 20220218
  Receipt Date: 20220218
  Transmission Date: 20220423
  Serious: Yes (Life-Threatening)
  Sender: FDA-Public Use
  Company Number: AR-NOVARTISPH-NVSC2022AR037280

PATIENT
  Sex: Female

DRUGS (1)
  1. CALCIUM [Suspect]
     Active Substance: CALCIUM
     Indication: Hypoparathyroidism
     Dosage: 4 DOSAGE FORM, QD, STARTED 16 YEARS AGO
     Route: 065
     Dates: end: 202111

REACTIONS (6)
  - Near death experience [Unknown]
  - Tetany [Not Recovered/Not Resolved]
  - Musculoskeletal stiffness [Unknown]
  - Cardiac disorder [Unknown]
  - Chest pain [Not Recovered/Not Resolved]
  - Product supply issue [Recovered/Resolved]

NARRATIVE: CASE EVENT DATE: 20130101
